FAERS Safety Report 10361839 (Version 2)
Quarter: 2014Q4

REPORT INFORMATION
  Report Type: Spontaneous
  Country: JP (occurrence: JP)
  Receive Date: 20140805
  Receipt Date: 20141105
  Transmission Date: 20150528
  Serious: Yes (Other)
  Sender: FDA-Public Use
  Company Number: PHHY2012JP133686

PATIENT
  Age: 65 Year
  Sex: Male

DRUGS (1)
  1. TASIGNA [Suspect]
     Active Substance: NILOTINIB
     Indication: CHRONIC MYELOID LEUKAEMIA
     Dosage: 300 MG, QD
     Route: 048
     Dates: start: 20120417

REACTIONS (5)
  - Pyrexia [Unknown]
  - Hepatic function abnormal [Unknown]
  - Chest discomfort [Unknown]
  - Electrocardiogram QT prolonged [Unknown]
  - Rash [Unknown]

NARRATIVE: CASE EVENT DATE: 201204
